FAERS Safety Report 9298547 (Version 2)
Quarter: 2013Q4

REPORT INFORMATION
  Report Type: Spontaneous
  Country: US (occurrence: US)
  Receive Date: 20130520
  Receipt Date: 20131104
  Transmission Date: 20140711
  Serious: Yes (Hospitalization)
  Sender: FDA-Public Use
  Company Number: US-B.I. PHARMACEUTICALS,INC./RIDGEFIELD-2013-BI-13604BP

PATIENT
  Age: 76 Year
  Sex: Male
  Weight: 121.56 kg

DRUGS (12)
  1. PRADAXA [Suspect]
     Indication: ANTICOAGULANT THERAPY
     Dosage: 150 MG
     Route: 048
     Dates: start: 20120110, end: 20120630
  2. ZYLOPRIM [Concomitant]
     Dosage: 300 MG
     Route: 048
  3. ACTOS [Concomitant]
     Dosage: 30 MG
     Route: 048
  4. LIPITOR [Concomitant]
     Dosage: 40 MG
     Route: 048
  5. JANUVIA [Concomitant]
     Dosage: 100 MG
     Route: 048
  6. AMARYL [Concomitant]
     Dosage: 8 MG
     Route: 048
  7. SYNTHROID [Concomitant]
     Dosage: 75 MCG
     Route: 048
  8. LANOXIN [Concomitant]
     Dosage: 125 MCG
     Route: 048
  9. PRILOSEC [Concomitant]
     Dosage: 40 MG
     Route: 048
  10. KLOR-CON [Concomitant]
     Dosage: 10 MEQ
     Route: 048
  11. LASIX [Concomitant]
     Dosage: 40 MG
     Route: 048
  12. OSTEO BI-FLEX [Concomitant]

REACTIONS (1)
  - Cerebral haemorrhage [Unknown]
